FAERS Safety Report 4916731-0 (Version None)
Quarter: 2006Q1

REPORT INFORMATION
  Report Type: 
  Country: None (occurrence: None)
  Receive Date: 20060220
  Receipt Date: 20060130
  Transmission Date: 20060701
  Serious: Yes (Disabling, Other)
  Sender: FDA-Public Use
  Company Number: PHEH2006US01476

PATIENT
  Age: 14 Year
  Sex: Male
  Weight: 140 kg

DRUGS (8)
  1. TRILEPTAL [Suspect]
     Indication: AFFECTIVE DISORDER
     Dosage: 600 MG, BID
     Dates: start: 20051004
  2. TRILEPTAL [Suspect]
     Dosage: 900 MG, QD
     Route: 048
     Dates: start: 20051122
  3. ABILIFY [Concomitant]
     Indication: BIPOLAR DISORDER
     Dosage: 20 MG, QD
     Route: 048
     Dates: start: 20051122
  4. PROZAC [Concomitant]
     Indication: DEPRESSION
     Dosage: 40 MG, QD
     Route: 048
  5. RITALIN [Concomitant]
     Indication: ATTENTION DEFICIT/HYPERACTIVITY DISORDER
     Dosage: 30 MG, QD
  6. HUMAN GROWTH HORMONE, RECOMBINANT [Concomitant]
     Indication: GROWTH HORMONE DEFICIENCY
     Route: 058
  7. LEVOTHYROXINE SODIUM [Concomitant]
     Indication: HYPOTHYROIDISM
     Dosage: 25 MG, QD
     Route: 048
  8. RISPERDAL [Concomitant]
     Indication: AGITATION
     Dosage: 3 MG, UNK
     Route: 048
     Dates: end: 20051101

REACTIONS (8)
  - AGGRESSION [None]
  - AGITATION [None]
  - DEPRESSION [None]
  - DRUG INEFFECTIVE [None]
  - HALLUCINATION, AUDITORY [None]
  - HOMICIDAL IDEATION [None]
  - IRRITABILITY [None]
  - SUICIDAL IDEATION [None]
